FAERS Safety Report 8968956 (Version 1)
Quarter: 2012Q4

REPORT INFORMATION
  Report Type: 
  Country: US (occurrence: US)
  Receive Date: 20121218
  Receipt Date: 20121218
  Transmission Date: 20130627
  Serious: Yes (Other)
  Sender: FDA-Public Use
  Company Number: US-BRISTOL-MYERS SQUIBB COMPANY-16327132

PATIENT
  Age: 57 Year
  Sex: Male
  Weight: 102 kg

DRUGS (3)
  1. ABILIFY [Suspect]
     Indication: BIPOLAR II DISORDER
     Dosage: Not taken any for 7-10 days.
     Dates: start: 201112
  2. CELEXA [Suspect]
  3. NEURONTIN [Suspect]

REACTIONS (1)
  - Suicidal ideation [Unknown]
